FAERS Safety Report 7739245-1 (Version None)
Quarter: 2011Q3

REPORT INFORMATION
  Report Type: 
  Country: None (occurrence: None)
  Receive Date: 20110909
  Receipt Date: 20110901
  Transmission Date: 20111222
  Serious: Yes (Hospitalization, Other)
  Sender: FDA-Public Use
  Company Number: JP-JNJFOC-20110203488

PATIENT
  Sex: Male
  Weight: 55 kg

DRUGS (8)
  1. ITRACONAZOLE [Suspect]
     Indication: ASPERGILLOSIS
     Route: 048
     Dates: start: 20030927, end: 20050905
  2. ALLOPURINOL [Concomitant]
     Route: 048
     Dates: start: 20100127, end: 20101110
  3. ITRACONAZOLE [Suspect]
     Route: 048
     Dates: start: 20061006, end: 20090325
  4. ITRACONAZOLE [Suspect]
     Route: 048
     Dates: start: 20090408, end: 20091216
  5. ITRACONAZOLE [Suspect]
     Route: 048
     Dates: start: 20101020, end: 20110124
  6. ALLOPURINOL [Concomitant]
     Route: 048
     Dates: start: 20100127, end: 20101110
  7. ALLOPURINOL [Concomitant]
     Indication: GOUT
     Route: 048
     Dates: start: 20081105, end: 20091216
  8. ALLOPURINOL [Concomitant]
     Indication: HYPERURICAEMIA
     Route: 048
     Dates: start: 20081105, end: 20091216

REACTIONS (1)
  - HAEMOLYTIC ANAEMIA [None]
